FAERS Safety Report 10290533 (Version 1)
Quarter: 2014Q3

REPORT INFORMATION
  Report Type: Spontaneous
  Country: FR (occurrence: FR)
  Receive Date: 20140710
  Receipt Date: 20140710
  Transmission Date: 20150326
  Serious: Yes (Hospitalization)
  Sender: FDA-Public Use
  Company Number: FR-SA-2014SA086919

PATIENT
  Age: 87 Year
  Sex: Female

DRUGS (8)
  1. RIFADINE [Suspect]
     Active Substance: RIFAMPIN
     Indication: LOCALISED INFECTION
     Route: 048
     Dates: start: 20140519, end: 20140616
  2. KARDEGIC [Concomitant]
     Active Substance: ASPIRIN LYSINE
     Route: 048
  3. LISINOPRIL. [Concomitant]
     Active Substance: LISINOPRIL
     Route: 048
  4. ZYVOXID [Suspect]
     Active Substance: LINEZOLID
     Indication: LOCALISED INFECTION
     Route: 048
     Dates: start: 20140523, end: 20140616
  5. METFORMIN [Concomitant]
     Active Substance: METFORMIN HYDROCHLORIDE
     Route: 048
  6. PRAVASTATIN SODIUM. [Concomitant]
     Active Substance: PRAVASTATIN SODIUM
     Route: 048
  7. TARGOCID [Concomitant]
     Active Substance: TEICOPLANIN
     Indication: LOCALISED INFECTION
     Dates: start: 20140519, end: 20140523
  8. OMEPRAZOLE. [Suspect]
     Active Substance: OMEPRAZOLE
     Indication: PRODUCT USED FOR UNKNOWN INDICATION
     Route: 048

REACTIONS (4)
  - Tetany [Recovered/Resolved]
  - Hypocalcaemia [Recovered/Resolved]
  - Diarrhoea [Recovered/Resolved]
  - Hypomagnesaemia [Recovered/Resolved]

NARRATIVE: CASE EVENT DATE: 201406
